FAERS Safety Report 13825453 (Version 4)
Quarter: 2017Q4

REPORT INFORMATION
  Report Type: Report from Study
  Country: RU (occurrence: RU)
  Receive Date: 20170802
  Receipt Date: 20171226
  Transmission Date: 20180320
  Serious: Yes (Life-Threatening, Hospitalization, Disabling)
  Sender: FDA-Public Use
  Company Number: RU-ROCHE-1971501

PATIENT
  Age: 44 Year
  Sex: Female
  Weight: 55 kg

DRUGS (13)
  1. VEMURAFENIB. [Suspect]
     Active Substance: VEMURAFENIB
     Indication: MALIGNANT MELANOMA
     Dosage: RUN IN PERIOD (CYCLE 1 = 28 DAYS) AS PER PROTOCOL (4 TABLETS).?DATE OF MOST RECENT DOSE (3 TABLETS)
     Route: 048
     Dates: start: 20170616
  2. ZODAC [Concomitant]
     Active Substance: CETIRIZINE HYDROCHLORIDE
     Indication: PRURITUS
     Route: 048
     Dates: start: 20170625, end: 20170630
  3. OMEZ [Concomitant]
     Active Substance: OMEPRAZOLE
     Route: 048
     Dates: start: 20170804, end: 20170905
  4. NISE [Concomitant]
     Active Substance: NIMESULIDE
     Indication: PYREXIA
     Route: 048
     Dates: start: 20170722, end: 20170727
  5. NISE [Concomitant]
     Active Substance: NIMESULIDE
     Indication: MYOSITIS
  6. DIMEDROL [Concomitant]
     Active Substance: DIPHENHYDRAMINE
     Indication: PRURITUS
     Route: 030
     Dates: start: 20170728, end: 20170728
  7. COBIMETINIB. [Suspect]
     Active Substance: COBIMETINIB
     Indication: MALIGNANT MELANOMA
     Dosage: RUN IN PERIOD (CYCLE 1 = 28 DAYS) AS PER PROTOCOL.?DATE OF MOST RECENT DOSE (60 MG) ADMINISITERED PR
     Route: 048
     Dates: start: 20170616
  8. PROPRANOLOL [Concomitant]
     Active Substance: PROPRANOLOL HYDROCHLORIDE
     Indication: MYOSITIS
     Route: 048
     Dates: start: 20170802, end: 20170807
  9. ATEZOLIZUMAB. [Suspect]
     Active Substance: ATEZOLIZUMAB
     Indication: MALIGNANT MELANOMA
     Dosage: DATE OF MOST RECENT DOSE PRIOR TO SERIOUS ADVERSE EVENT WAS ON 14/JUL/2017
     Route: 042
     Dates: start: 20170714
  10. DEXAMETHASONE. [Concomitant]
     Active Substance: DEXAMETHASONE
     Indication: PRURITUS
     Route: 030
     Dates: start: 20170728, end: 20170728
  11. SOLU-MEDROL [Concomitant]
     Active Substance: METHYLPREDNISOLONE SODIUM SUCCINATE
     Indication: MYOSITIS
  12. SOLU-MEDROL [Concomitant]
     Active Substance: METHYLPREDNISOLONE SODIUM SUCCINATE
     Indication: HEPATITIS
     Route: 042
     Dates: start: 20170728, end: 20170803
  13. CONTROLOC [Concomitant]
     Active Substance: PANTOPRAZOLE SODIUM
     Route: 042
     Dates: start: 20170728, end: 20170803

REACTIONS (2)
  - Myositis [Recovered/Resolved]
  - Hepatitis [Recovered/Resolved]

NARRATIVE: CASE EVENT DATE: 20170726
